FAERS Safety Report 12080103 (Version 1)
Quarter: 2016Q1

REPORT INFORMATION
  Report Type: Report from Study
  Country: ES (occurrence: ES)
  Receive Date: 20160216
  Receipt Date: 20160216
  Transmission Date: 20160526
  Serious: Yes (Hospitalization, Other)
  Sender: FDA-Public Use
  Company Number: ES-PFM-ES-2015-4311

PATIENT
  Age: 68 Year
  Sex: Female

DRUGS (4)
  1. GEMCITABINE [Suspect]
     Active Substance: GEMCITABINE\GEMCITABINE HYDROCHLORIDE
     Indication: BREAST CANCER
     Dosage: 2400 MG, CYCLICAL (1/21), 2400MG ON DAY
     Route: 042
     Dates: start: 20020422, end: 20020422
  2. GEMCITABINE [Suspect]
     Active Substance: GEMCITABINE\GEMCITABINE HYDROCHLORIDE
     Dosage: 1800 MG, CYCLICAL (1/21), ON DAY 1
     Route: 042
     Dates: start: 20020513, end: 20020603
  3. NAVELBINE [Suspect]
     Active Substance: VINORELBINE TARTRATE
     Indication: BREAST CANCER
     Dosage: 104 MG, CYCLICAL (1/21), ON DAY 1
     Route: 042
     Dates: start: 20020422, end: 20020422
  4. NAVELBINE [Suspect]
     Active Substance: VINORELBINE TARTRATE
     Dosage: 45 MG, CYCLICAL (1/21) ON DAY 1
     Route: 042
     Dates: start: 20020513, end: 20020603

REACTIONS (20)
  - Constipation [Recovered/Resolved]
  - Leukopenia [Unknown]
  - Alanine aminotransferase increased [Unknown]
  - Fatigue [Unknown]
  - Hypoalbuminaemia [Unknown]
  - Neutropenia [Unknown]
  - Lymphopenia [Unknown]
  - Dyspnoea [Unknown]
  - Abdominal pain [Unknown]
  - Blood alkaline phosphatase abnormal [Unknown]
  - Prothrombin time abnormal [Unknown]
  - Oedema [Unknown]
  - Vomiting [Unknown]
  - Bone pain [Unknown]
  - Infection [Unknown]
  - Aspartate aminotransferase increased [Unknown]
  - Malignant neoplasm progression [Unknown]
  - Thrombocytopenia [Unknown]
  - Diarrhoea [Unknown]
  - Nausea [Unknown]

NARRATIVE: CASE EVENT DATE: 20020427
